FAERS Safety Report 4751830-8 (Version None)
Quarter: 2005Q3

REPORT INFORMATION
  Report Type: 
  Country: None (occurrence: None)
  Receive Date: 20050822
  Receipt Date: 20050719
  Transmission Date: 20060218
  Serious: No
  Sender: FDA-Public Use
  Company Number: PHEH2005US08017

PATIENT
  Sex: Female

DRUGS (3)
  1. ZELNORM [Suspect]
  2. ALCOHOL(ETHANOL) [Suspect]
  3. ACTONEL [Concomitant]

REACTIONS (3)
  - ABDOMINAL DISTENSION [None]
  - ABDOMINAL PAIN [None]
  - DRUG INTERACTION [None]
